FAERS Safety Report 5659045-6 (Version None)
Quarter: 2008Q1

REPORT INFORMATION
  Report Type: 
  Country: None (occurrence: None)
  Receive Date: 20080310
  Receipt Date: 20070927
  Transmission Date: 20080703
  Serious: No
  Sender: FDA-Public Use
  Company Number: US-BAYER-200713144BCC

PATIENT
  Age: 41 Year
  Sex: Male
  Weight: 73 kg

DRUGS (3)
  1. ALEVE [Suspect]
     Indication: PAIN
     Route: 048
     Dates: start: 20070601, end: 20070927
  2. ONE A DAY MEN'S HEALTH FORMULA [Suspect]
     Indication: VITAMIN SUPPLEMENTATION
     Route: 048
     Dates: start: 20070801, end: 20070926
  3. ONE A DAY PRODUCT [Suspect]
     Indication: VITAMIN SUPPLEMENTATION
     Route: 048
     Dates: start: 20070601, end: 20070801

REACTIONS (1)
  - BLOOD IRON INCREASED [None]
